FAERS Safety Report 7970436-0 (Version None)
Quarter: 2011Q4

REPORT INFORMATION
  Report Type: 
  Country: None (occurrence: None)
  Receive Date: 20111212
  Receipt Date: 20111201
  Transmission Date: 20120403
  Serious: No
  Sender: FDA-Public Use
  Company Number: PHHY2011BR16336

PATIENT
  Sex: Female

DRUGS (3)
  1. RASILEZ AMLO [Suspect]
     Dosage: 1 DF(150/5MG), UNK
  2. EXFORGE [Suspect]
     Dosage: 80 MG VALS AND 5 MG AMLO
  3. RASILEZ AMLO [Suspect]
     Dosage: 1 DF (300/10 MG), UNK

REACTIONS (5)
  - RENAL DISORDER [None]
  - JOINT SWELLING [None]
  - OEDEMA PERIPHERAL [None]
  - DRUG INEFFECTIVE [None]
  - HYPERTENSION [None]
